FAERS Safety Report 8898868 (Version 1)
Quarter: 2012Q4

REPORT INFORMATION
  Report Type: 
  Country: US (occurrence: US)
  Receive Date: 20121108
  Receipt Date: 20121108
  Transmission Date: 20130627
  Serious: No
  Sender: FDA-Public Use
  Company Number: US-AMGEN-USASP2012033976

PATIENT
  Sex: Female
  Weight: 73.92 kg

DRUGS (10)
  1. ENBREL [Suspect]
     Indication: PRODUCT USED FOR UNKNOWN INDICATION
     Dosage: 50 mg, qwk
     Route: 058
  2. ZOCOR [Concomitant]
     Dosage: 5 mg, UNK
  3. SANCTURA [Concomitant]
     Dosage: 60 mg, UNK
  4. CELEBREX [Concomitant]
     Dosage: 100 mg, UNK
  5. ALLEGRA [Concomitant]
     Dosage: 30 mg, UNK
  6. LISINOPRIL [Concomitant]
     Dosage: 10 mg, UNK
  7. SIMVASTATIN [Concomitant]
     Dosage: 10 mg, UNK
  8. LOVAZA [Concomitant]
     Dosage: 15 mg, UNK
  9. ACIPHEX [Concomitant]
     Dosage: 20 mg, UNK
  10. LEVOTHYROXIN [Concomitant]
     Dosage: 200 mug, UNK

REACTIONS (1)
  - Injection site reaction [Unknown]
